FAERS Safety Report 17492092 (Version 1)
Quarter: 2020Q1

REPORT INFORMATION
  Report Type: Spontaneous
  Country: IN (occurrence: IN)
  Receive Date: 20200304
  Receipt Date: 20200304
  Transmission Date: 20200409
  Serious: Yes (Other)
  Sender: FDA-Public Use
  Company Number: IN-B.I. PHARMACEUTICALS,INC./RIDGEFIELD-2020-BI-011600

PATIENT
  Age: 45 Year
  Sex: Female

DRUGS (5)
  1. XOVOLTIB [Suspect]
     Active Substance: AFATINIB
     Indication: METASTATIC NEOPLASM
     Route: 065
     Dates: start: 201703, end: 201809
  2. CRIZOTINIB [Suspect]
     Active Substance: CRIZOTINIB
     Indication: ADENOCARCINOMA
     Route: 065
     Dates: start: 201806, end: 201809
  3. PLATINUM [Concomitant]
     Active Substance: PLATINUM
     Indication: PRODUCT USED FOR UNKNOWN INDICATION
     Route: 065
  4. CARBOPLATIN;PEMETREXED [Concomitant]
     Indication: PRODUCT USED FOR UNKNOWN INDICATION
     Dosage: STANDARD DOSAGES (EVERY 3 WEEKS)
     Route: 065
     Dates: start: 201608, end: 201702
  5. ZOLEDRONATE [Concomitant]
     Active Substance: ZOLEDRONIC ACID
     Indication: PRODUCT USED FOR UNKNOWN INDICATION
     Dosage: EVERY 4 WEEKS
     Route: 065

REACTIONS (5)
  - Malignant neoplasm progression [Unknown]
  - Malignant neoplasm progression [Recovering/Resolving]
  - Fatigue [Unknown]
  - Nausea [Unknown]
  - Rash [Unknown]
